FAERS Safety Report 23173695 (Version 1)
Quarter: 2023Q4

REPORT INFORMATION
  Report Type: Spontaneous
  Country: US (occurrence: US)
  Receive Date: 20231111
  Receipt Date: 20231111
  Transmission Date: 20240110
  Serious: No
  Sender: FDA-Public Use
  Company Number: US-SA-SAC20231108001176

PATIENT
  Age: 62 Year
  Sex: Female

DRUGS (2)
  1. DUPIXENT [Suspect]
     Active Substance: DUPILUMAB
     Indication: Asthma
     Dosage: 600MG, ONCE
     Route: 058
     Dates: start: 20230918, end: 20230918
  2. DUPIXENT [Suspect]
     Active Substance: DUPILUMAB
     Dosage: DOSE OR AMOUNT: 300MG/2ML FREQUENCY: EVERY 14 DAYS
     Route: 058
     Dates: end: 2023

REACTIONS (3)
  - Gastroenteritis viral [Unknown]
  - Hunger [Unknown]
  - Increased appetite [Unknown]

NARRATIVE: CASE EVENT DATE: 20230101
